FAERS Safety Report 18076669 (Version 6)
Quarter: 2021Q1

REPORT INFORMATION
  Report Type: Spontaneous
  Country: US (occurrence: US)
  Receive Date: 20200727
  Receipt Date: 20210211
  Transmission Date: 20210419
  Serious: Yes (Hospitalization)
  Sender: FDA-Public Use
  Company Number: US-IMMUNOMEDICS, INC.-2020IMMU000469

PATIENT
  Age: 45 Year
  Sex: Female

DRUGS (2)
  1. TRODELVY [Suspect]
     Active Substance: SACITUZUMAB GOVITECAN-HZIY
     Indication: TRIPLE NEGATIVE BREAST CANCER
     Dosage: 10 MG/KG DAY 1 AND DAY 8 OF 21 DAYS CYCLE
     Route: 042
     Dates: start: 20200702, end: 20200702
  2. TRODELVY [Suspect]
     Active Substance: SACITUZUMAB GOVITECAN-HZIY
     Dosage: 10 MG/KG DAY 1 AND DAY 8 OF 21 DAYS CYCLE
     Route: 042
     Dates: start: 20200709, end: 20200709

REACTIONS (5)
  - Nausea [Not Recovered/Not Resolved]
  - Septic shock [Not Recovered/Not Resolved]
  - Pancytopenia [Recovering/Resolving]
  - Cerebrovascular accident [Not Recovered/Not Resolved]
  - Fatigue [Not Recovered/Not Resolved]
